FAERS Safety Report 4865828-2 (Version None)
Quarter: 2005Q4

REPORT INFORMATION
  Report Type: 
  Country: None (occurrence: None)
  Receive Date: 20051220
  Receipt Date: 20051209
  Transmission Date: 20060501
  Serious: Yes (Death, Hospitalization)
  Sender: FDA-Public Use
  Company Number: JP200512000202

PATIENT
  Sex: Female

DRUGS (1)
  1. GEMZAR [Suspect]
     Indication: PANCREATIC CARCINOMA
     Dosage: UNK, OTHER; INTRAVENOUS
     Route: 042
     Dates: start: 20050701

REACTIONS (3)
  - CEREBRAL INFARCTION [None]
  - HYPOAESTHESIA [None]
  - MYOCARDIAL INFARCTION [None]
